FAERS Safety Report 6135129-3 (Version None)
Quarter: 2009Q1

REPORT INFORMATION
  Report Type: 
  Country: None (occurrence: None)
  Receive Date: 20090325
  Receipt Date: 20090308
  Transmission Date: 20090719
  Serious: Yes (Other)
  Sender: FDA-Public Use
  Company Number: 2007S1007667

PATIENT
  Age: 43 Year
  Sex: Female
  Weight: 102.5129 kg

DRUGS (6)
  1. PHOSPHOSODA FLAVOR NOT SPECIFIED [Suspect]
     Indication: COLONOSCOPY
     Dosage: 90 ML; TOTAL; PO
     Route: 048
     Dates: start: 20070114, end: 20070115
  2. ORTHO-NOVUM [Concomitant]
  3. CYCLOBENZAPRINE [Concomitant]
  4. MULTI-VIT [Concomitant]
  5. ASPIRIN [Concomitant]
  6. ANTIHISTAMINES [Concomitant]

REACTIONS (4)
  - HYPERTENSION [None]
  - NEPHROCALCINOSIS [None]
  - RENAL FAILURE ACUTE [None]
  - RENAL INJURY [None]
